FAERS Safety Report 9582615 (Version 2)
Quarter: 2014Q2

REPORT INFORMATION
  Report Type: Spontaneous
  Country: US (occurrence: US)
  Receive Date: 20131002
  Receipt Date: 20140522
  Transmission Date: 20141212
  Serious: Yes (Hospitalization, Other)
  Sender: FDA-Public Use
  Company Number: US-AMGEN-USASP2013041804

PATIENT
  Age: 48 Year
  Sex: Female

DRUGS (3)
  1. ENBREL [Suspect]
     Indication: RHEUMATOID ARTHRITIS
     Dosage: 50 MG, QWK
     Route: 058
     Dates: start: 201306
  2. ENBREL [Suspect]
     Dosage: UNK
     Route: 058
  3. PENICILLIN                         /00000901/ [Suspect]
     Indication: PRODUCT USED FOR UNKNOWN INDICATION
     Dosage: UNK
     Route: 065

REACTIONS (12)
  - White blood cell count decreased [Unknown]
  - Pruritus generalised [Not Recovered/Not Resolved]
  - Anal abscess [Recovered/Resolved]
  - Tooth abscess [Recovered/Resolved]
  - Dry skin [Unknown]
  - Haemorrhoids [Unknown]
  - Injection site erythema [Not Recovered/Not Resolved]
  - Injection site pruritus [Not Recovered/Not Resolved]
  - Injection site urticaria [Not Recovered/Not Resolved]
  - Injection site swelling [Not Recovered/Not Resolved]
  - Oral fungal infection [Unknown]
  - Injection site rash [Not Recovered/Not Resolved]
